FAERS Safety Report 6153660-1 (Version None)
Quarter: 2009Q2

REPORT INFORMATION
  Report Type: 
  Country: None (occurrence: None)
  Receive Date: 20090409
  Receipt Date: 20090227
  Transmission Date: 20091009
  Serious: Yes (Other)
  Sender: FDA-Public Use
  Company Number: 1000005655

PATIENT
  Age: 34 Year
  Sex: Female

DRUGS (15)
  1. ESCITALOPRAM [Suspect]
     Dosage: 15 MG (15 MG,1 IN 1 D),ORAL
     Route: 048
     Dates: start: 20080122, end: 20080716
  2. SEROQUEL [Suspect]
     Dosage: 650 MG (650 MG,1 IN 1 D),ORAL ; ORAL
     Route: 048
     Dates: start: 20080510, end: 20080526
  3. SEROQUEL [Suspect]
     Dosage: 650 MG (650 MG,1 IN 1 D),ORAL ; ORAL
     Route: 048
     Dates: start: 20080527, end: 20080604
  4. SEROQUEL [Suspect]
     Dosage: SEE IMAGE
     Route: 048
     Dates: start: 20080312, end: 20080312
  5. SEROQUEL [Suspect]
     Dosage: SEE IMAGE
     Route: 048
     Dates: start: 20080313, end: 20080320
  6. SEROQUEL [Suspect]
     Dosage: SEE IMAGE
     Route: 048
     Dates: start: 20080321, end: 20080328
  7. SEROQUEL [Suspect]
     Dosage: SEE IMAGE
     Route: 048
     Dates: start: 20080329, end: 20080330
  8. SEROQUEL [Suspect]
     Dosage: SEE IMAGE
     Route: 048
     Dates: start: 20080331, end: 20080402
  9. SEROQUEL [Suspect]
     Dosage: SEE IMAGE
     Route: 048
     Dates: start: 20080403, end: 20080410
  10. SEROQUEL [Suspect]
     Dosage: SEE IMAGE
     Route: 048
     Dates: start: 20080411, end: 20080509
  11. ZYPREXA [Suspect]
     Dosage: 10 MG (10 MG,1 IN 1 D),ORAL ; ORAL
     Route: 048
     Dates: start: 20080108, end: 20080101
  12. ZYPREXA [Suspect]
     Dosage: 10 MG (10 MG,1 IN 1 D),ORAL ; ORAL
     Route: 048
     Dates: start: 20080101, end: 20080704
  13. AKINETON [Suspect]
     Dosage: 4 MG (4 MG,1 IN 1 D),ORAL
     Route: 048
     Dates: start: 20080306, end: 20080619
  14. ZOPICLON [Concomitant]
  15. PANTOZOL [Concomitant]

REACTIONS (10)
  - ALANINE AMINOTRANSFERASE INCREASED [None]
  - ARRHYTHMIA [None]
  - ATRIAL FIBRILLATION [None]
  - BLOOD POTASSIUM DECREASED [None]
  - CARDIAC ARREST [None]
  - HEART RATE DECREASED [None]
  - SINUS BRADYCARDIA [None]
  - SUPRAVENTRICULAR EXTRASYSTOLES [None]
  - VENTRICULAR EXTRASYSTOLES [None]
  - WHITE BLOOD CELL COUNT DECREASED [None]
